FAERS Safety Report 13014103 (Version 1)
Quarter: 2016Q4

REPORT INFORMATION
  Report Type: Spontaneous
  Country: FR (occurrence: FR)
  Receive Date: 20161209
  Receipt Date: 20161209
  Transmission Date: 20170207
  Serious: Yes (Hospitalization, Other)
  Sender: FDA-Public Use
  Company Number: FR-BAXTER-2016BAX060536

PATIENT
  Age: 74 Year
  Sex: Male

DRUGS (16)
  1. VINCRISTINE HOSPIRA [Suspect]
     Active Substance: VINCRISTINE
     Indication: B-CELL LYMPHOMA
     Dosage: 1 SINGLE INTAKE
     Route: 042
     Dates: start: 20161005, end: 20161005
  2. VINCRISTINE HOSPIRA [Suspect]
     Active Substance: VINCRISTINE
     Route: 065
     Dates: start: 20161118
  3. BISOPROLOL/HYDROCHLOROTHIAZIDE [Suspect]
     Active Substance: BISOPROLOL FUMARATE\HYDROCHLOROTHIAZIDE
     Indication: PRODUCT USED FOR UNKNOWN INDICATION
     Route: 065
     Dates: start: 20161018
  4. ZELITREX [Suspect]
     Active Substance: VALACYCLOVIR HYDROCHLORIDE
     Indication: PROPHYLAXIS
     Dosage: 2 TABLETS
     Route: 048
     Dates: start: 20161004, end: 20161013
  5. BISOPROLOL/HYDROCHLOROTHIAZIDE [Concomitant]
     Active Substance: BISOPROLOL FUMARATE\HYDROCHLOROTHIAZIDE
     Indication: PRODUCT USED FOR UNKNOWN INDICATION
     Route: 065
  6. MABTHERA [Suspect]
     Active Substance: RITUXIMAB
     Indication: B-CELL LYMPHOMA
     Dosage: 1 SINGLE INTAKE
     Route: 042
     Dates: start: 20161004, end: 20161004
  7. ALLOPURINOL. [Concomitant]
     Active Substance: ALLOPURINOL
     Indication: PRODUCT USED FOR UNKNOWN INDICATION
     Route: 065
  8. ENDOXAN 1000 MG, POUDRE POUR SOLUTION INJECTABLE [Suspect]
     Active Substance: CYCLOPHOSPHAMIDE
     Indication: B-CELL LYMPHOMA
     Dosage: 1 SINGLE INTAKE
     Route: 042
     Dates: start: 20161005, end: 20161005
  9. MABTHERA [Suspect]
     Active Substance: RITUXIMAB
     Route: 065
     Dates: start: 20161118
  10. ZOPHREN [Suspect]
     Active Substance: ONDANSETRON
     Indication: PROPHYLAXIS OF NAUSEA AND VOMITING
     Dosage: 1 TABLET
     Route: 048
     Dates: start: 201610, end: 201610
  11. ALLOPURINOL. [Suspect]
     Active Substance: ALLOPURINOL
     Indication: PROPHYLAXIS
     Route: 048
     Dates: start: 20161004, end: 20161013
  12. SOLUPRED [Suspect]
     Active Substance: PREDNISOLONE
     Indication: B-CELL LYMPHOMA
     Route: 048
     Dates: start: 20161004, end: 20161008
  13. PRIMPERAN [Suspect]
     Active Substance: METOCLOPRAMIDE HYDROCHLORIDE
     Indication: PROPHYLAXIS OF NAUSEA AND VOMITING
     Dosage: IF NEEDED
     Route: 048
     Dates: start: 201610, end: 201610
  14. ZELITREX [Suspect]
     Active Substance: VALACYCLOVIR HYDROCHLORIDE
     Indication: PRODUCT USED FOR UNKNOWN INDICATION
     Route: 065
     Dates: start: 20161018
  15. ENDOXAN 1000 MG, POUDRE POUR SOLUTION INJECTABLE [Suspect]
     Active Substance: CYCLOPHOSPHAMIDE
     Route: 065
     Dates: start: 20161118
  16. SOLUPRED [Suspect]
     Active Substance: PREDNISOLONE
     Route: 065
     Dates: start: 20161118

REACTIONS (13)
  - Pruritus [Recovered/Resolved]
  - Eosinophilia [Recovered/Resolved]
  - Splenomegaly [Unknown]
  - Pyrexia [Unknown]
  - Skin exfoliation [Unknown]
  - General physical health deterioration [Unknown]
  - Dermatitis bullous [Recovered/Resolved]
  - Renal failure [Recovering/Resolving]
  - Cholestasis [Unknown]
  - Hypotension [Unknown]
  - Adverse drug reaction [Unknown]
  - Rash [Recovered/Resolved]
  - Conjunctivitis [Unknown]

NARRATIVE: CASE EVENT DATE: 201610
